FAERS Safety Report 10572687 (Version 1)
Quarter: 2014Q4

REPORT INFORMATION
  Report Type: Spontaneous
  Country: RO (occurrence: None)
  Receive Date: 20141106
  Receipt Date: 20141106
  Transmission Date: 20150529
  Serious: Yes (Other)
  Sender: FDA-Public Use
  Company Number: RO2014GSK016328

PATIENT
  Age: 32 Year
  Sex: Male

DRUGS (3)
  1. DARUNAVIR PLUS RITONAVIR [Suspect]
     Active Substance: DARUNAVIR\RITONAVIR
     Indication: HIV INFECTION
  2. PENTACARINATE(PENTAMIDINE ISETHIONATE) INHALER [Concomitant]
  3. ABACAVIR SULFATE + LAMIVUDINE [Suspect]
     Active Substance: ABACAVIR SULFATE\LAMIVUDINE
     Indication: HIV INFECTION

REACTIONS (10)
  - Progressive multifocal leukoencephalopathy [None]
  - Immune reconstitution inflammatory syndrome [None]
  - Polyomavirus test positive [None]
  - Glossopharyngeal nerve paralysis [None]
  - Pyrexia [None]
  - Nuclear magnetic resonance imaging abnormal [None]
  - Nervous system disorder [None]
  - Dysphagia [None]
  - VIIth nerve paralysis [None]
  - Hypoglossal nerve paralysis [None]
